FAERS Safety Report 6596457-0 (Version None)
Quarter: 2010Q1

REPORT INFORMATION
  Report Type: 
  Country: None (occurrence: None)
  Receive Date: 20100223
  Receipt Date: 20100215
  Transmission Date: 20100710
  Serious: Yes (Other)
  Sender: FDA-Public Use
  Company Number: US-ELI_LILLY_AND_COMPANY-US201002004574

PATIENT
  Sex: Male

DRUGS (7)
  1. HUMALOG [Suspect]
     Indication: DIABETES MELLITUS
     Dosage: UNK, 3/D
  2. HUMALOG [Suspect]
     Dosage: UNK, AS NEEDED
  3. HUMULIN R [Suspect]
     Indication: DIABETES MELLITUS
     Dates: start: 19980101
  4. HUMULIN N [Suspect]
     Indication: DIABETES MELLITUS
  5. LANTUS [Concomitant]
  6. CORTICOSTEROID NOS [Concomitant]
  7. PREDNISONE [Concomitant]
     Dates: start: 19980101

REACTIONS (5)
  - BLINDNESS [None]
  - BLOOD GLUCOSE DECREASED [None]
  - BLOOD GLUCOSE INCREASED [None]
  - CONVULSION [None]
  - SURGERY [None]
